FAERS Safety Report 5788842-1 (Version None)
Quarter: 2008Q2

REPORT INFORMATION
  Report Type: 
  Country: None (occurrence: None)
  Receive Date: 20080626
  Receipt Date: 20071114
  Transmission Date: 20081010
  Serious: No
  Sender: FDA-Public Use
  Company Number: US-ASTRAZENECA-2007UW26455

PATIENT
  Age: 56 Year
  Sex: Male
  Weight: 63.5 kg

DRUGS (9)
  1. PULMICORT RESPULES [Suspect]
     Indication: DYSKINESIA
     Route: 055
     Dates: start: 20071001
  2. THEOPHYLLINE [Concomitant]
  3. ALBUTEROL [Concomitant]
     Dosage: 4 OR 5 TIMES PER DAY
     Route: 055
  4. IPRATROPIUM BROMIDE [Concomitant]
  5. ALUPENT [Concomitant]
  6. NASONEX [Concomitant]
  7. GUAIFENESIN [Concomitant]
  8. ZYVOX [Concomitant]
  9. LEVAQUIN [Concomitant]

REACTIONS (2)
  - ASTHENIA [None]
  - QUALITY OF LIFE DECREASED [None]
